FAERS Safety Report 10070023 (Version 1)
Quarter: 2014Q2

REPORT INFORMATION
  Report Type: Report from Study
  Country: US (occurrence: US)
  Receive Date: 20140410
  Receipt Date: 20140410
  Transmission Date: 20141212
  Serious: Yes (Other)
  Sender: FDA-Public Use
  Company Number: US-SA-2014SA039964

PATIENT
  Age: 55 Year
  Sex: Male

DRUGS (2)
  1. LANTUS [Suspect]
     Indication: PRODUCT USED FOR UNKNOWN INDICATION
     Dosage: START DATE: 5 YEARS AGO
     Route: 065
  2. NOVOLOG [Concomitant]

REACTIONS (4)
  - Renal failure [Not Recovered/Not Resolved]
  - Cardiac disorder [Not Recovered/Not Resolved]
  - Peripheral swelling [Not Recovered/Not Resolved]
  - Blood glucose abnormal [Not Recovered/Not Resolved]
